FAERS Safety Report 9063680 (Version 1)
Quarter: 2013Q1

REPORT INFORMATION
  Report Type: Report from Study
  Country: US (occurrence: US)
  Receive Date: 20130131
  Receipt Date: 20130131
  Transmission Date: 20140127
  Serious: No
  Sender: FDA-Public Use
  Company Number: US-ABBOTT-12P-163-1007937-00

PATIENT
  Sex: Female

DRUGS (12)
  1. HUMIRA [Suspect]
     Indication: RHEUMATOID ARTHRITIS
     Route: 058
     Dates: start: 200310
  2. ETODOLAC [Concomitant]
     Indication: RHEUMATOID ARTHRITIS
  3. LAMICTAL [Concomitant]
     Indication: CONVULSION
  4. LEVOTHYROXINE [Concomitant]
     Indication: HYPOTHYROIDISM
  5. AMLODIPINE [Concomitant]
     Indication: HYPERTENSION
  6. ZOLOFT [Concomitant]
     Indication: DEPRESSION
  7. ALPREZALINE [Concomitant]
     Indication: ANXIETY
  8. METROPOLOL [Concomitant]
     Indication: HYPERTENSION
  9. PREVASTATIN [Concomitant]
     Indication: BLOOD CHOLESTEROL INCREASED
  10. WELLBUTRIN SR [Concomitant]
     Indication: DEPRESSION
  11. OMEGA 3 [Concomitant]
     Indication: IMMUNE SYSTEM DISORDER
  12. MULTIVITAMINS [Concomitant]
     Indication: ROUTINE HEALTH MAINTENANCE

REACTIONS (2)
  - Device difficult to use [Not Recovered/Not Resolved]
  - Fine motor delay [Not Recovered/Not Resolved]
